FAERS Safety Report 18496645 (Version 2)
Quarter: 2021Q2

REPORT INFORMATION
  Report Type: Spontaneous
  Country: US (occurrence: US)
  Receive Date: 20201112
  Receipt Date: 20210629
  Transmission Date: 20210717
  Serious: No
  Sender: FDA-Public Use
  Company Number: US-TEVA-2020-US-1848130

PATIENT

DRUGS (1)
  1. QVAR REDIHALER [Suspect]
     Active Substance: BECLOMETHASONE DIPROPIONATE
     Route: 055

REACTIONS (5)
  - Device delivery system issue [Unknown]
  - Device malfunction [Unknown]
  - Device use issue [Unknown]
  - Product design issue [Unknown]
  - Productive cough [Unknown]
